FAERS Safety Report 22350314 (Version 1)
Quarter: 2023Q2

REPORT INFORMATION
  Report Type: Report from Study
  Country: NL (occurrence: NL)
  Receive Date: 20230522
  Receipt Date: 20230522
  Transmission Date: 20230722
  Serious: Yes (Hospitalization)
  Sender: FDA-Public Use
  Company Number: NL-JNJFOC-20230541262

PATIENT
  Age: 75 Year
  Sex: Male
  Weight: 72 kg

DRUGS (11)
  1. TECLISTAMAB [Suspect]
     Active Substance: TECLISTAMAB
     Indication: Plasma cell myeloma
     Route: 058
     Dates: start: 20221212
  2. TECLISTAMAB [Suspect]
     Active Substance: TECLISTAMAB
     Route: 058
  3. ACETYLCYSTEINE [Concomitant]
     Active Substance: ACETYLCYSTEINE
     Indication: Productive cough
     Dosage: 1 DD
     Route: 048
     Dates: start: 20230126
  4. COTRIMOXAZOLE [Concomitant]
     Active Substance: SULFAMETHOXAZOLE\TRIMETHOPRIM
     Indication: Antifungal prophylaxis
     Dosage: 1 DD
     Route: 048
     Dates: start: 202201
  5. EDOXABAN [Concomitant]
     Active Substance: EDOXABAN
     Indication: Thrombosis prophylaxis
     Dosage: 1 DD
     Route: 048
     Dates: start: 201702
  6. DEXAMETHASONE [Concomitant]
     Active Substance: DEXAMETHASONE
     Indication: Premedication
     Route: 048
     Dates: start: 202212
  7. ESOMEPRAZOLE [Concomitant]
     Active Substance: ESOMEPRAZOLE
     Dosage: 1 DD
     Route: 048
     Dates: start: 202108
  8. LEVOFLOXACIN [Concomitant]
     Active Substance: LEVOFLOXACIN
     Indication: Infection prophylaxis
     Dosage: 1 DD
     Route: 048
     Dates: start: 202212
  9. TAMSULOSIN [Concomitant]
     Active Substance: TAMSULOSIN
     Indication: Benign prostatic hyperplasia
     Dosage: 1 DD
     Route: 048
     Dates: start: 201705
  10. VALACYCLOVIR HYDROCHLORIDE [Concomitant]
     Active Substance: VALACYCLOVIR HYDROCHLORIDE
     Indication: Prophylaxis
     Dosage: 2 DD
     Route: 048
     Dates: start: 201608
  11. DARBEPOETIN ALFA [Concomitant]
     Active Substance: DARBEPOETIN ALFA
     Indication: Anaemia
     Route: 058
     Dates: start: 20221202

REACTIONS (1)
  - Aspergillus infection [Recovered/Resolved]

NARRATIVE: CASE EVENT DATE: 20230126
